FAERS Safety Report 22292118 (Version 1)
Quarter: 2023Q2

REPORT INFORMATION
  Report Type: Spontaneous
  Country: FR (occurrence: FR)
  Receive Date: 20230508
  Receipt Date: 20230508
  Transmission Date: 20230721
  Serious: Yes (Hospitalization, Other)
  Sender: FDA-Public Use
  Company Number: FR-AFSSAPS-MP2023000836

PATIENT
  Age: 16 Year
  Sex: Male

DRUGS (6)
  1. FLUOXETINE HYDROCHLORIDE [Suspect]
     Active Substance: FLUOXETINE HYDROCHLORIDE
     Indication: Depression
     Dosage: 1 DOSAGE FORM, ONCE A DAY
     Route: 048
     Dates: start: 20230327, end: 20230414
  2. TRIMEPRAZINE [Suspect]
     Active Substance: TRIMEPRAZINE
     Indication: Insomnia
     Dosage: 1 DOSAGE FORM, ONCE A DAY,20 DROPS IN THE EVENING
     Route: 048
     Dates: start: 20230317, end: 20230414
  3. CYAMEMAZINE [Suspect]
     Active Substance: CYAMEMAZINE
     Indication: Depression
     Dosage: 1 DOSAGE FORM, ONCE A DAY,20 DROPS IN THE EVENING
     Route: 048
     Dates: start: 20230321, end: 20230412
  4. LOXAPINE [Suspect]
     Active Substance: LOXAPINE
     Indication: Psychotic disorder
     Dosage: 1 DOSAGE FORM, ONCE A DAY,25 DROPS IN THE EVENING
     Route: 048
     Dates: start: 20230412, end: 20230412
  5. OLANZAPINE [Suspect]
     Active Substance: OLANZAPINE
     Indication: Psychotic disorder
     Dosage: 1 DOSAGE FORM, ONCE A DAY
     Route: 048
     Dates: start: 20230407, end: 20230412
  6. OLANZAPINE [Suspect]
     Active Substance: OLANZAPINE
     Indication: Psychotic disorder
     Dosage: UNK UNK, ONCE A DAY
     Route: 048
     Dates: start: 20230407, end: 20230412

REACTIONS (1)
  - Urinary retention [Not Recovered/Not Resolved]

NARRATIVE: CASE EVENT DATE: 20230412
